FAERS Safety Report 25730794 (Version 1)
Quarter: 2025Q3

REPORT INFORMATION
  Report Type: Spontaneous
  Country: US (occurrence: None)
  Receive Date: 20250826
  Receipt Date: 20250826
  Transmission Date: 20251020
  Serious: No
  Sender: FDA-CTU
  Company Number: None

PATIENT
  Age: 34 Year
  Sex: Female
  Weight: 69.75 kg

DRUGS (1)
  1. PROZAC [Suspect]
     Active Substance: FLUOXETINE HYDROCHLORIDE
     Indication: Obsessive-compulsive disorder
     Dates: start: 20100201

REACTIONS (10)
  - Symptom recurrence [None]
  - Suicidal ideation [None]
  - Homicidal ideation [None]
  - Obsessive thoughts [None]
  - Depression [None]
  - Anhedonia [None]
  - Akathisia [None]
  - Electric shock sensation [None]
  - Muscle spasms [None]
  - Withdrawal syndrome [None]

NARRATIVE: CASE EVENT DATE: 20220812
